FAERS Safety Report 7821844-X (Version None)
Quarter: 2011Q4

REPORT INFORMATION
  Report Type: 
  Country: None (occurrence: None)
  Receive Date: 20111018
  Receipt Date: 20101116
  Transmission Date: 20120403
  Serious: No
  Sender: FDA-Public Use
  Company Number: US-ASTRAZENECA-2010SE54690

PATIENT
  Age: 62 Year
  Sex: Female

DRUGS (3)
  1. TRIAMTERENE AND HYDROCHLOROTHIAZIDE [Concomitant]
  2. LISINOPRIL [Concomitant]
  3. SYMBICORT [Suspect]
     Indication: CHRONIC OBSTRUCTIVE PULMONARY DISEASE
     Dosage: 160 MCG BID
     Route: 055
     Dates: start: 20100301

REACTIONS (4)
  - ASTHENIA [None]
  - DYSPNOEA [None]
  - BRONCHITIS [None]
  - FATIGUE [None]
